FAERS Safety Report 5222845-0 (Version None)
Quarter: 2007Q1

REPORT INFORMATION
  Report Type: 
  Country: None (occurrence: None)
  Receive Date: 20070129
  Receipt Date: 20070118
  Transmission Date: 20070707
  Serious: Yes (Hospitalization)
  Sender: FDA-Public Use
  Company Number: NO-GLAXOSMITHKLINE-B0455801A

PATIENT
  Age: 14 Year
  Sex: Male
  Weight: 47 kg

DRUGS (2)
  1. LAMICTAL [Suspect]
     Indication: EPILEPSY
     Dosage: 25MG PER DAY
     Route: 048
     Dates: start: 20060101, end: 20061101
  2. ZYRTEC [Concomitant]
     Dosage: 10MG PER DAY
     Route: 065

REACTIONS (10)
  - CHAPPED LIPS [None]
  - CONJUNCTIVITIS [None]
  - GENERAL PHYSICAL HEALTH DETERIORATION [None]
  - NAUSEA [None]
  - NEUTROPHIL COUNT DECREASED [None]
  - PHARYNGEAL LESION [None]
  - PYREXIA [None]
  - RASH [None]
  - STEVENS-JOHNSON SYNDROME [None]
  - TONSILLAR HYPERTROPHY [None]
